FAERS Safety Report 9576007 (Version 1)
Quarter: 2013Q4

REPORT INFORMATION
  Report Type: Spontaneous
  Country: US (occurrence: US)
  Receive Date: 20131001
  Receipt Date: 20131001
  Transmission Date: 20140711
  Serious: Yes (Hospitalization)
  Sender: FDA-Public Use
  Company Number: US-AMGEN-USASP2013000970

PATIENT
  Age: 57 Year
  Sex: Female

DRUGS (2)
  1. ENBREL [Suspect]
     Indication: RHEUMATOID ARTHRITIS
     Dosage: 50 MG, QWK
     Dates: start: 201201, end: 201212
  2. METHOTREXATE [Concomitant]
     Dosage: 2.5 MG, 6 TABLETS WEEKLY

REACTIONS (4)
  - Cellulitis [Recovered/Resolved]
  - Cough [Not Recovered/Not Resolved]
  - Arthropod bite [Recovered/Resolved]
  - Nasopharyngitis [Not Recovered/Not Resolved]
